FAERS Safety Report 23327941 (Version 1)
Quarter: 2023Q4

REPORT INFORMATION
  Report Type: Spontaneous
  Country: US (occurrence: None)
  Receive Date: 20231221
  Receipt Date: 20231221
  Transmission Date: 20240109
  Serious: Yes (Hospitalization)
  Sender: FDA-Public Use
  Company Number: None

PATIENT
  Age: 49 Year
  Sex: Female

DRUGS (1)
  1. HUMIRA [Suspect]
     Active Substance: ADALIMUMAB
     Indication: Crohn^s disease
     Dosage: FREQUENCY : DAILY;?
     Route: 058
     Dates: start: 20220822

REACTIONS (2)
  - Gastrointestinal surgery [None]
  - Therapy interrupted [None]

NARRATIVE: CASE EVENT DATE: 20231130
